FAERS Safety Report 22620397 (Version 1)
Quarter: 2023Q2

REPORT INFORMATION
  Report Type: Report from Study
  Country: CZ (occurrence: CZ)
  Receive Date: 20230620
  Receipt Date: 20230620
  Transmission Date: 20230721
  Serious: Yes (Hospitalization)
  Sender: FDA-Public Use
  Company Number: CZ-BAXALTA-2016BLT001354

PATIENT
  Age: 11 Year
  Sex: Male
  Weight: 44 kg

DRUGS (14)
  1. ADVATE [Suspect]
     Active Substance: ANTIHEMOPHILIC FACTOR, HUMAN RECOMBINANT
     Indication: Factor VIII deficiency
     Dosage: UNK
     Route: 042
     Dates: start: 20140526
  2. ADVATE [Suspect]
     Active Substance: ANTIHEMOPHILIC FACTOR, HUMAN RECOMBINANT
     Indication: Factor VIII deficiency
     Dosage: UNK
     Route: 042
     Dates: start: 20140526
  3. ADVATE [Suspect]
     Active Substance: ANTIHEMOPHILIC FACTOR, HUMAN RECOMBINANT
     Indication: Factor VIII deficiency
     Dosage: UNK
     Route: 042
     Dates: start: 20140526
  4. ADVATE [Suspect]
     Active Substance: ANTIHEMOPHILIC FACTOR, HUMAN RECOMBINANT
     Indication: Prophylaxis
     Dosage: 1250 INTERNATIONAL UNIT
     Route: 042
     Dates: start: 20160226
  5. ADVATE [Suspect]
     Active Substance: ANTIHEMOPHILIC FACTOR, HUMAN RECOMBINANT
     Indication: Prophylaxis
     Dosage: 1250 INTERNATIONAL UNIT
     Route: 042
     Dates: start: 20160226
  6. ADVATE [Suspect]
     Active Substance: ANTIHEMOPHILIC FACTOR, HUMAN RECOMBINANT
     Indication: Prophylaxis
     Dosage: 1250 INTERNATIONAL UNIT
     Route: 042
     Dates: start: 20160226
  7. ADVATE [Suspect]
     Active Substance: ANTIHEMOPHILIC FACTOR, HUMAN RECOMBINANT
     Dosage: 1250 INTERNATIONAL UNIT
     Route: 042
     Dates: start: 20160226
  8. ADVATE [Suspect]
     Active Substance: ANTIHEMOPHILIC FACTOR, HUMAN RECOMBINANT
     Dosage: 1250 INTERNATIONAL UNIT
     Route: 042
     Dates: start: 20160226
  9. ADVATE [Suspect]
     Active Substance: ANTIHEMOPHILIC FACTOR, HUMAN RECOMBINANT
     Dosage: 1250 INTERNATIONAL UNIT
     Route: 042
     Dates: start: 20160226
  10. ADVATE [Suspect]
     Active Substance: ANTIHEMOPHILIC FACTOR, HUMAN RECOMBINANT
     Dosage: 1250 INTERNATIONAL UNIT, QD
     Route: 042
     Dates: start: 20160229, end: 20160302
  11. ADVATE [Suspect]
     Active Substance: ANTIHEMOPHILIC FACTOR, HUMAN RECOMBINANT
     Dosage: 1250 INTERNATIONAL UNIT, QD
     Route: 042
     Dates: start: 20160229, end: 20160302
  12. ADVATE [Suspect]
     Active Substance: ANTIHEMOPHILIC FACTOR, HUMAN RECOMBINANT
     Dosage: 1250 INTERNATIONAL UNIT, QD
     Route: 042
     Dates: start: 20160229, end: 20160302
  13. DIMETHICONE [Concomitant]
     Active Substance: DIMETHICONE
     Indication: Abdominal pain
     Dosage: 2 CAPS, 4X A DAY
     Route: 065
     Dates: start: 20160301, end: 20160302
  14. SALINE [Concomitant]
     Active Substance: SODIUM CHLORIDE
     Indication: Abdominal pain
     Dosage: 780 ML, 1X A DAY
     Route: 065
     Dates: start: 20160301, end: 20160302

REACTIONS (1)
  - Haematuria [Recovered/Resolved]

NARRATIVE: CASE EVENT DATE: 20160227
